FAERS Safety Report 8303230-1 (Version None)
Quarter: 2012Q2

REPORT INFORMATION
  Report Type: 
  Country: None (occurrence: None)
  Receive Date: 20120423
  Receipt Date: 20120412
  Transmission Date: 20120825
  Serious: No
  Sender: FDA-Public Use
  Company Number: US-BIOGENIDEC-2012BI013125

PATIENT
  Age: 36 Year
  Sex: Female

DRUGS (3)
  1. TYSABRI [Suspect]
     Indication: MULTIPLE SCLEROSIS
     Route: 042
     Dates: start: 20100312
  2. NEURONTIN [Concomitant]
  3. CYMBALTA [Concomitant]

REACTIONS (4)
  - HYPOAESTHESIA [None]
  - AGGRESSION [None]
  - OEDEMA PERIPHERAL [None]
  - FEELING ABNORMAL [None]
